FAERS Safety Report 17587433 (Version 2)
Quarter: 2020Q4

REPORT INFORMATION
  Report Type: Spontaneous
  Country: US (occurrence: US)
  Receive Date: 20200326
  Receipt Date: 20201210
  Transmission Date: 20210113
  Serious: No
  Sender: FDA-Public Use
  Company Number: US-JNJFOC-20200317899

PATIENT
  Age: 74 Year
  Sex: Male
  Weight: 90.07 kg

DRUGS (6)
  1. CYTOXAN [Concomitant]
     Active Substance: CYCLOPHOSPHAMIDE
     Indication: TRANSITIONAL CELL CARCINOMA
     Route: 065
     Dates: start: 20190422, end: 20200914
  2. PEMBROLIZUMAB. [Concomitant]
     Active Substance: PEMBROLIZUMAB
     Indication: TRANSITIONAL CELL CARCINOMA
     Route: 065
     Dates: start: 20190826
  3. KYPROLIS [Concomitant]
     Active Substance: CARFILZOMIB
     Indication: TRANSITIONAL CELL CARCINOMA
     Route: 065
     Dates: start: 20190422, end: 20200914
  4. DECADRON [Concomitant]
     Active Substance: DEXAMETHASONE
     Indication: TRANSITIONAL CELL CARCINOMA
     Route: 065
     Dates: start: 20190422, end: 20200914
  5. RETACRIT [EPOETIN ZETA] [Concomitant]
     Active Substance: ERYTHROPOIETIN
     Indication: ANAEMIA
     Route: 065
     Dates: start: 20190211
  6. BALVERSA [Suspect]
     Active Substance: ERDAFITINIB
     Indication: TRANSITIONAL CELL CARCINOMA
     Dosage: APPROXIMATE TOTAL DOSES: 300 DOSES
     Route: 048
     Dates: start: 20191014, end: 20200309

REACTIONS (5)
  - Pruritus [Recovered/Resolved]
  - Drug intolerance [Unknown]
  - Epistaxis [Recovered/Resolved]
  - Dry skin [Recovered/Resolved]
  - Throat irritation [Recovered/Resolved]

NARRATIVE: CASE EVENT DATE: 20200224
